FAERS Safety Report 8409222-6 (Version None)
Quarter: 2012Q2

REPORT INFORMATION
  Report Type: 
  Country: None (occurrence: None)
  Receive Date: 20120604
  Receipt Date: 20120524
  Transmission Date: 20120825
  Serious: No
  Sender: FDA-Public Use
  Company Number: US-B.I. PHARMACEUTICALS,INC./RIDGEFIELD-2011-BP-09969BP

PATIENT
  Sex: Male
  Weight: 103.6 kg

DRUGS (14)
  1. PRADAXA [Suspect]
     Indication: CEREBROVASCULAR ACCIDENT PROPHYLAXIS
     Dosage: 300 MG
     Route: 048
     Dates: start: 20110329
  2. FENOFIDINE [Concomitant]
     Dosage: 134 MCG
     Route: 048
  3. OXYBUTYNIN [Concomitant]
     Dosage: 10 MG
     Route: 048
  4. NEXIUM [Concomitant]
     Dates: start: 20070416
  5. PRADAXA [Suspect]
     Indication: ATRIAL FIBRILLATION
  6. DOXAZOSIN MESYLATE [Concomitant]
     Dosage: 1 MG
     Route: 048
  7. ZOCOR [Concomitant]
     Indication: BLOOD CHOLESTEROL INCREASED
     Dosage: 20 MG
     Route: 048
     Dates: start: 20110119
  8. PRADAXA [Suspect]
     Indication: HEART RATE INCREASED
  9. COREG [Concomitant]
     Dosage: 6.25 MG
     Route: 048
     Dates: start: 20070830
  10. LORAZEPAM [Concomitant]
     Indication: ANXIETY
     Route: 048
  11. NORVASC [Concomitant]
     Dates: start: 20070416
  12. FENOFIBRATE [Concomitant]
     Dates: start: 20100721
  13. DIGOXIN [Concomitant]
     Indication: HEART RATE INCREASED
     Dosage: 125 MCG
     Route: 048
     Dates: start: 20110402
  14. FAMOTIDINE [Concomitant]
     Dosage: 40 MG
     Route: 048

REACTIONS (8)
  - ABDOMINAL DISCOMFORT [None]
  - ABDOMINAL DISTENSION [None]
  - ERUCTATION [None]
  - GASTRITIS [None]
  - DYSPEPSIA [None]
  - RASH GENERALISED [None]
  - DRY MOUTH [None]
  - URTICARIA [None]
